FAERS Safety Report 7805692-2 (Version None)
Quarter: 2011Q4

REPORT INFORMATION
  Report Type: 
  Country: None (occurrence: None)
  Receive Date: 20111011
  Receipt Date: 20111004
  Transmission Date: 20120403
  Serious: Yes (Hospitalization)
  Sender: FDA-Public Use
  Company Number: US-BIOGENIDEC-2011BI017597

PATIENT
  Age: 60 Year
  Sex: Female
  Weight: 89 kg

DRUGS (15)
  1. VENTOLIN HFA [Concomitant]
     Route: 055
  2. MILK THISTLE [Concomitant]
     Route: 048
  3. SERTRALINE HYDROCHLORIDE [Concomitant]
     Route: 048
  4. ADVAIR DISKUS 100/50 [Concomitant]
  5. KLONOPIN [Concomitant]
     Route: 048
  6. AVONEX [Suspect]
     Indication: MULTIPLE SCLEROSIS
     Route: 030
  7. NEURONTIN [Concomitant]
     Route: 048
  8. AVONEX [Suspect]
     Route: 030
     Dates: start: 20100801
  9. METOPROLOL TARTRATE [Concomitant]
     Route: 048
  10. NITROGLYCERIN [Concomitant]
     Route: 060
  11. LASIX [Concomitant]
     Route: 048
  12. ASPIRIN [Concomitant]
     Route: 048
  13. BACLOFEN [Concomitant]
     Route: 048
  14. TRAMADOL HCL [Concomitant]
     Route: 048
  15. CYCLOBENZAPRINE [Concomitant]
     Route: 048

REACTIONS (3)
  - TRICUSPID VALVE INCOMPETENCE [None]
  - ACUTE MYOCARDIAL INFARCTION [None]
  - MITRAL VALVE INCOMPETENCE [None]
